FAERS Safety Report 6891623-9 (Version None)
Quarter: 2010Q3

REPORT INFORMATION
  Report Type: 
  Country: None (occurrence: None)
  Receive Date: 20100731
  Receipt Date: 20071123
  Transmission Date: 20110219
  Serious: Yes (Other)
  Sender: FDA-Public Use
  Company Number: US-PFIZER INC-2007079611

PATIENT
  Sex: Female
  Weight: 78.47 kg

DRUGS (2)
  1. CELONTIN [Suspect]
     Indication: CONVULSION
     Dosage: BID
     Dates: end: 20070918
  2. ACIPHEX [Concomitant]

REACTIONS (2)
  - BLOOD CHOLESTEROL INCREASED [None]
  - CONVULSION [None]
